FAERS Safety Report 25401250 (Version 1)
Quarter: 2025Q2

REPORT INFORMATION
  Report Type: Spontaneous
  Country: US (occurrence: US)
  Receive Date: 20250605
  Receipt Date: 20250605
  Transmission Date: 20250716
  Serious: No
  Sender: TARO
  Company Number: US-TARO PHARMACEUTICALS USA INC.-2025TAR01444

PATIENT

DRUGS (1)
  1. AMMONIUM LACTATE [Suspect]
     Active Substance: AMMONIUM LACTATE
     Indication: Skin fissures
     Dosage: UNK, OD
     Route: 061

REACTIONS (2)
  - Expired product administered [Unknown]
  - Product packaging issue [Unknown]
